FAERS Safety Report 7371935-5 (Version None)
Quarter: 2011Q1

REPORT INFORMATION
  Report Type: 
  Country: None (occurrence: None)
  Receive Date: 20110324
  Receipt Date: 20100915
  Transmission Date: 20110831
  Serious: No
  Sender: FDA-Public Use
  Company Number: US-BAUSCH-2010BL005213

PATIENT
  Age: 34 Year
  Sex: Male

DRUGS (2)
  1. FLUNISOLIDE [Suspect]
     Indication: HYPERSENSITIVITY
     Route: 045
     Dates: start: 20100801
  2. ATENOLOL [Concomitant]
     Indication: HYPERTENSION
     Dates: start: 20100701

REACTIONS (3)
  - EPISTAXIS [None]
  - INCORRECT DOSE ADMINISTERED [None]
  - ENLARGED UVULA [None]
